FAERS Safety Report 6270655-8 (Version None)
Quarter: 2009Q3

REPORT INFORMATION
  Report Type: 
  Country: None (occurrence: None)
  Receive Date: 20090714
  Receipt Date: 20090629
  Transmission Date: 20100115
  Serious: Yes (Disabling)
  Sender: FDA-Public Use
  Company Number: ADE2009-0705

PATIENT
  Age: 64 Year
  Sex: Female

DRUGS (2)
  1. CITALOPRAM HYDROBROMIDE [Suspect]
     Dates: start: 20081002
  2. AMITRIPTYLINE HCL [Suspect]
     Dosage: 50MG, DAILY, ORAL
     Route: 048
     Dates: start: 20070101, end: 20081012

REACTIONS (4)
  - DRUG INTERACTION [None]
  - FEELING ABNORMAL [None]
  - HYPERSOMNIA [None]
  - TREMOR [None]
